FAERS Safety Report 4844854-3 (Version None)
Quarter: 2005Q4

REPORT INFORMATION
  Report Type: 
  Country: None (occurrence: None)
  Receive Date: 20051201
  Receipt Date: 20051201
  Transmission Date: 20060501
  Serious: Yes (Other)
  Sender: FDA-Public Use
  Company Number: None

PATIENT
  Sex: Female
  Weight: 79.3795 kg

DRUGS (2)
  1. CYMBALTA [Suspect]
     Indication: ANXIETY
     Dosage: 60 MG  1 DAILY PO
     Route: 048
     Dates: start: 20050415, end: 20051113
  2. CYMBALTA [Suspect]
     Indication: DEPRESSION
     Dosage: 60 MG  1 DAILY PO
     Route: 048
     Dates: start: 20050415, end: 20051113

REACTIONS (9)
  - DIZZINESS [None]
  - DRUG WITHDRAWAL SYNDROME [None]
  - EMOTIONAL DISORDER [None]
  - HYPERAESTHESIA [None]
  - INFLUENZA [None]
  - NAUSEA [None]
  - NERVOUS SYSTEM DISORDER [None]
  - PAIN [None]
  - TINNITUS [None]
